FAERS Safety Report 7030145-1 (Version None)
Quarter: 2010Q4

REPORT INFORMATION
  Report Type: 
  Country: None (occurrence: None)
  Receive Date: 20101001
  Receipt Date: 20100924
  Transmission Date: 20110411
  Serious: Yes (Other)
  Sender: FDA-Public Use
  Company Number: 2010SP051124

PATIENT
  Sex: Female

DRUGS (1)
  1. CERAZETTE (DESOGESTREL /00754001/) [Suspect]
     Indication: CONTRACEPTION
     Dosage: 75 MCG;QD;PO
     Route: 048

REACTIONS (2)
  - ASTHMA [None]
  - CONDITION AGGRAVATED [None]
